FAERS Safety Report 10220890 (Version 3)
Quarter: 2014Q3

REPORT INFORMATION
  Report Type: Spontaneous
  Country: US (occurrence: None)
  Receive Date: 20140604
  Receipt Date: 20140815
  Transmission Date: 20150326
  Serious: Yes (Hospitalization, Other)
  Sender: FDA-Public Use
  Company Number: UNT-2014-000996

PATIENT
  Age: 35 Year
  Sex: Female
  Weight: 108.8 kg

DRUGS (5)
  1. TYVASO [Suspect]
     Active Substance: TREPROSTINIL
     Indication: PULMONARY ARTERIAL HYPERTENSION
     Route: 055
     Dates: start: 20131126
  2. TRACLEER/01587701/ (BOSENTAN) [Concomitant]
  3. TYVASO [Suspect]
     Active Substance: TREPROSTINIL
     Indication: COR PULMONALE CHRONIC
     Route: 055
     Dates: start: 20131126
  4. TYVASO [Suspect]
     Active Substance: TREPROSTINIL
     Indication: ATRIAL SEPTAL DEFECT
     Route: 055
     Dates: start: 20131126
  5. REVATIO (SILDENAFIL CITRATE) [Concomitant]

REACTIONS (4)
  - Migraine [None]
  - Anxiety [None]
  - Chest pain [None]
  - Atrial fibrillation [None]

NARRATIVE: CASE EVENT DATE: 20140518
